FAERS Safety Report 11236508 (Version 2)
Quarter: 2016Q2

REPORT INFORMATION
  Report Type: Report from Study
  Country: BE (occurrence: BE)
  Receive Date: 20150702
  Receipt Date: 20160415
  Transmission Date: 20160815
  Serious: Yes (Hospitalization)
  Sender: FDA-Public Use
  Company Number: PHHO2015BE010994

PATIENT
  Age: 48 Year
  Sex: Female
  Weight: 62 kg

DRUGS (1)
  1. GILENYA [Suspect]
     Active Substance: FINGOLIMOD HYDROCHLORIDE
     Indication: MULTIPLE SCLEROSIS
     Dosage: 0.5 MG, BID
     Route: 048
     Dates: start: 20130910, end: 20150601

REACTIONS (2)
  - Bronchitis viral [Recovered/Resolved]
  - Asthma [Recovering/Resolving]

NARRATIVE: CASE EVENT DATE: 201505
